FAERS Safety Report 5650057-5 (Version None)
Quarter: 2008Q1

REPORT INFORMATION
  Report Type: 
  Country: None (occurrence: None)
  Receive Date: 20080303
  Receipt Date: 20080219
  Transmission Date: 20080703
  Serious: Yes (Death, Hospitalization, Disabling, Other)
  Sender: FDA-Public Use
  Company Number: 2008SP002241

PATIENT
  Age: 57 Year
  Sex: Female

DRUGS (5)
  1. TEMODAR [Suspect]
     Indication: GLIOSARCOMA
     Dosage: 125 MG; QD; PO; 300 MG;
     Dates: start: 20070214, end: 20070327
  2. TEMODAR [Suspect]
     Indication: GLIOSARCOMA
     Dosage: 125 MG; QD; PO; 300 MG;
     Dates: start: 20070507
  3. DECADRON /00016001/ (CON.) [Concomitant]
  4. LEXAPRO (CON.) [Concomitant]
  5. PHENYTOIN (CON.) /00017402/ [Concomitant]

REACTIONS (16)
  - BLOOD POTASSIUM DECREASED [None]
  - BLOOD PRESSURE INADEQUATELY CONTROLLED [None]
  - BRAIN SCAN ABNORMAL [None]
  - CONTUSION [None]
  - EPISTAXIS [None]
  - FALL [None]
  - HAEMATEMESIS [None]
  - HAEMORRHAGE INTRACRANIAL [None]
  - HEMIPARESIS [None]
  - HYDROCEPHALUS [None]
  - INTRAVENTRICULAR HAEMORRHAGE [None]
  - MEMORY IMPAIRMENT [None]
  - NERVOUS SYSTEM DISORDER [None]
  - PNEUMONIA [None]
  - STAPHYLOCOCCAL INFECTION [None]
  - THROMBOCYTOPENIA [None]
